FAERS Safety Report 9150110 (Version 2)
Quarter: 2013Q4

REPORT INFORMATION
  Report Type: Spontaneous
  Country: US (occurrence: US)
  Receive Date: 20130308
  Receipt Date: 20131125
  Transmission Date: 20140711
  Serious: Yes (Hospitalization)
  Sender: FDA-Public Use
  Company Number: US-BAYER-2013-027700

PATIENT
  Age: 19 Year
  Sex: Female

DRUGS (9)
  1. YAZ [Suspect]
     Indication: ACNE
     Dosage: 1 QD ( DAILY)
  2. YASMIN [Suspect]
     Indication: ACNE
  3. OCELLA [Suspect]
     Indication: ACNE
  4. AMOXICILLIN [Concomitant]
     Dosage: 500 MG, UNK
     Dates: start: 20091028
  5. VENTOLIN HFA [Concomitant]
     Indication: COUGH
     Dosage: 90 MCG
     Dates: start: 20091110
  6. PREDNISONE [Concomitant]
     Dosage: 60 MG, UNK
  7. OPIUM ALKALOIDS AND DERIVATIVES [Concomitant]
     Dosage: 1 TABLESPOON TID
     Route: 048
     Dates: start: 20091028, end: 20091110
  8. TYLENOL [Concomitant]
  9. TUSSIONEX [Concomitant]
     Indication: COUGH
     Dosage: 15 ML, B.I.D. ( TWICE DAILY) P.R.N. ( AS NEEDED)

REACTIONS (4)
  - Pulmonary embolism [None]
  - Injury [None]
  - Pain [None]
  - Pain [None]
